FAERS Safety Report 25149488 (Version 1)
Quarter: 2025Q2

REPORT INFORMATION
  Report Type: Spontaneous
  Country: IR (occurrence: IR)
  Receive Date: 20250402
  Receipt Date: 20250402
  Transmission Date: 20250716
  Serious: Yes (Life-Threatening, Hospitalization, Other)
  Sender: GLAND PHARMA
  Company Number: IR-GLANDPHARMA-IR-2025GLNLIT00876

PATIENT
  Age: 15 Year
  Sex: Female

DRUGS (6)
  1. CYTARABINE [Suspect]
     Active Substance: CYTARABINE
     Indication: Acute myeloid leukaemia
     Route: 065
  2. CYTARABINE [Suspect]
     Active Substance: CYTARABINE
     Indication: Cutaneous mucormycosis
  3. FLUDARABINE [Suspect]
     Active Substance: FLUDARABINE PHOSPHATE
     Indication: Acute myeloid leukaemia
     Route: 065
  4. FLUDARABINE [Suspect]
     Active Substance: FLUDARABINE PHOSPHATE
     Indication: Cutaneous mucormycosis
  5. AMIKACIN [Concomitant]
     Active Substance: AMIKACIN
     Indication: Sepsis
     Route: 065
  6. CEFEPIME [Concomitant]
     Active Substance: CEFEPIME HYDROCHLORIDE
     Indication: Sepsis
     Route: 065

REACTIONS (4)
  - Febrile neutropenia [Unknown]
  - Bronchopulmonary aspergillosis [Unknown]
  - Aspergillus infection [Unknown]
  - Immune reconstitution inflammatory syndrome [Unknown]
